FAERS Safety Report 22037860 (Version 3)
Quarter: 2023Q1

REPORT INFORMATION
  Report Type: Report from Study
  Country: CA (occurrence: CA)
  Receive Date: 20230227
  Receipt Date: 20230305
  Transmission Date: 20230417
  Serious: Yes (Death, Other)
  Sender: FDA-Public Use
  Company Number: CA-ABBVIE-4318100

PATIENT
  Age: 76 Year
  Sex: Male

DRUGS (2)
  1. RINVOQ [Suspect]
     Active Substance: UPADACITINIB
     Indication: Dermatitis atopic
     Dosage: FORM STRENGTH: 15 MILLIGRAM
     Route: 048
     Dates: start: 20230105, end: 20230222
  2. RINVOQ [Suspect]
     Active Substance: UPADACITINIB
     Indication: Dermatitis atopic
     Route: 048

REACTIONS (8)
  - Chronic obstructive pulmonary disease [Fatal]
  - Pneumococcal sepsis [Unknown]
  - Atrial fibrillation [Unknown]
  - Type 2 diabetes mellitus [Unknown]
  - Hypothyroidism [Unknown]
  - Osteoporosis [Unknown]
  - Cardiac failure congestive [Unknown]
  - Emphysema [Unknown]

NARRATIVE: CASE EVENT DATE: 20230222
